FAERS Safety Report 14092388 (Version 1)
Quarter: 2017Q4

REPORT INFORMATION
  Report Type: Spontaneous
  Country: US (occurrence: None)
  Receive Date: 20171016
  Receipt Date: 20171016
  Transmission Date: 20180321
  Serious: No
  Sender: FDA-Public Use
  Company Number: None

PATIENT

DRUGS (2)
  1. ACETYLCYSTEINE  ACETYLCYSTEINE [Suspect]
     Active Substance: ACETYLCYSTEINE
     Dosage: DOSAGE FORM - INJECTABLE?TYPE - STERILE VIAL?SIZE - 30 ML?STRENGTH - 6G/30ML
     Route: 042
  2. ACETYLCYSTEINE ACETYLCYSTEINE PRESERVATIVE FREE [Suspect]
     Active Substance: ACETYLCYSTEINE SODIUM
     Dosage: DOSAGE FORM - SOLUTION?TYPE - VIAL?SIZE - 30 ML
     Route: 055

REACTIONS (3)
  - Product selection error [None]
  - Product label confusion [None]
  - Product packaging confusion [None]
